FAERS Safety Report 4871636-9 (Version None)
Quarter: 2006Q1

REPORT INFORMATION
  Report Type: 
  Country: None (occurrence: None)
  Receive Date: 20060104
  Receipt Date: 20041104
  Transmission Date: 20060701
  Serious: Yes (Hospitalization)
  Sender: FDA-Public Use
  Company Number: PHEH2004US12007

PATIENT
  Age: 39 Year
  Sex: Male
  Weight: 72.562 kg

DRUGS (1)
  1. CLOZARIL [Suspect]
     Indication: SCHIZOPHRENIA
     Dosage: 600 MG, QD
     Route: 048
     Dates: start: 19890101, end: 20050601

REACTIONS (6)
  - ABNORMAL BEHAVIOUR [None]
  - AUTISM SPECTRUM DISORDER [None]
  - HYPERHIDROSIS [None]
  - HYPERVENTILATION [None]
  - LOGORRHOEA [None]
  - THERAPEUTIC RESPONSE DECREASED [None]
